FAERS Safety Report 24403815 (Version 1)
Quarter: 2024Q4

REPORT INFORMATION
  Report Type: Report from Study
  Country: IT (occurrence: IT)
  Receive Date: 20241007
  Receipt Date: 20241007
  Transmission Date: 20250114
  Serious: No
  Sender: ROCHE
  Company Number: IT-ROCHE-3139910

PATIENT
  Age: 72 Year
  Sex: Female

DRUGS (3)
  1. OBINUTUZUMAB [Suspect]
     Active Substance: OBINUTUZUMAB
     Indication: Follicular lymphoma
     Dosage: NUMBER OF CYCLES RECEIVED (AT STUDY ENTRY):2
     Route: 042
     Dates: start: 20200707, end: 20210720
  2. OBINUTUZUMAB [Suspect]
     Active Substance: OBINUTUZUMAB
     Route: 042
     Dates: start: 20200707
  3. LACTULOSE [Concomitant]
     Active Substance: LACTULOSE
     Dates: start: 20200821

REACTIONS (8)
  - Rash pruritic [Recovered/Resolved]
  - Anaemia [Recovered/Resolved]
  - Oedema peripheral [Recovered/Resolved]
  - Genital prolapse [Unknown]
  - Cystocele [Unknown]
  - Desmoid tumour [Unknown]
  - Chronic gastritis [Unknown]
  - Cardiac disorder [Unknown]

NARRATIVE: CASE EVENT DATE: 20200718
